FAERS Safety Report 6190668-4 (Version None)
Quarter: 2009Q2

REPORT INFORMATION
  Report Type: 
  Country: None (occurrence: None)
  Receive Date: 20090514
  Receipt Date: 20090504
  Transmission Date: 20091009
  Serious: Yes (Other)
  Sender: FDA-Public Use
  Company Number: US-PFIZER INC-2009208529

PATIENT
  Sex: Female

DRUGS (8)
  1. LIPITOR [Suspect]
     Indication: BLOOD CHOLESTEROL INCREASED
     Dosage: UNK
     Dates: start: 20000101
  2. SIMVASTATIN [Suspect]
     Indication: BLOOD CHOLESTEROL INCREASED
     Dates: start: 20090101, end: 20090101
  3. VITAMINS [Concomitant]
     Dosage: UNK
  4. MINERAL TAB [Concomitant]
     Dosage: UNK
  5. VALSARTAN [Concomitant]
     Dosage: UNK
  6. ACETYLSALICYLIC ACID [Concomitant]
     Dosage: UNK
  7. AMIODARONE [Concomitant]
  8. TOPROL-XL [Suspect]

REACTIONS (6)
  - ATRIAL FIBRILLATION [None]
  - BLOOD CHOLESTEROL INCREASED [None]
  - BLOOD TRIGLYCERIDES DECREASED [None]
  - MYALGIA [None]
  - MYOCARDIAL INFARCTION [None]
  - WEIGHT INCREASED [None]
